FAERS Safety Report 5702511-5 (Version None)
Quarter: 2008Q2

REPORT INFORMATION
  Report Type: 
  Country: None (occurrence: None)
  Receive Date: 20080411
  Receipt Date: 20071113
  Transmission Date: 20081010
  Serious: No
  Sender: FDA-Public Use
  Company Number: US-ASTRAZENECA-2007UW21141

PATIENT
  Age: 65 Year
  Sex: Male
  Weight: 83.9 kg

DRUGS (3)
  1. TENORMIN [Suspect]
     Route: 048
  2. LIPITOR [Concomitant]
  3. ZETIA [Concomitant]

REACTIONS (1)
  - CHEST PAIN [None]
